FAERS Safety Report 5157162-0 (Version None)
Quarter: 2006Q4

REPORT INFORMATION
  Report Type: 
  Country: None (occurrence: None)
  Receive Date: 20061127
  Receipt Date: 20061113
  Transmission Date: 20070319
  Serious: Yes (Hospitalization)
  Sender: FDA-Public Use
  Company Number: FR-ELI_LILLY_AND_COMPANY-FR200611002437

PATIENT
  Age: 82 Year
  Sex: Female

DRUGS (3)
  1. FORTEO [Suspect]
     Indication: OSTEOPOROSIS
     Dosage: 20 UG, DAILY (1/D)
     Route: 058
     Dates: start: 20050827
  2. NEURONTIN [Concomitant]
     Indication: PAIN
     Dosage: 300 MG, 3/D
     Dates: start: 20060501
  3. EFFERALGAN [Concomitant]
     Indication: PAIN
     Dosage: 1 G, 4/D

REACTIONS (1)
  - HIP FRACTURE [None]
